FAERS Safety Report 15372148 (Version 1)
Quarter: 2018Q3

REPORT INFORMATION
  Report Type: Spontaneous
  Country: US (occurrence: US)
  Receive Date: 20180911
  Receipt Date: 20180911
  Transmission Date: 20181010
  Serious: No
  Sender: FDA-Public Use
  Company Number: PHEH2018US037315

PATIENT
  Sex: Female

DRUGS (3)
  1. GLEEVEC [Suspect]
     Active Substance: IMATINIB MESYLATE
     Dosage: 300 MG, UNK
     Route: 065
  2. IMATINIB [Suspect]
     Active Substance: IMATINIB
     Indication: PRODUCT USED FOR UNKNOWN INDICATION
     Route: 065
  3. GLEEVEC [Suspect]
     Active Substance: IMATINIB MESYLATE
     Indication: PRODUCT USED FOR UNKNOWN INDICATION
     Dosage: 400 MG, UNK
     Route: 065

REACTIONS (10)
  - Ill-defined disorder [Unknown]
  - Wrong technique in product usage process [Unknown]
  - Abdominal discomfort [Unknown]
  - Fluid retention [Unknown]
  - Vomiting [Unknown]
  - Malaise [Unknown]
  - Dyspnoea [Unknown]
  - Abnormal faeces [Unknown]
  - Eye disorder [Recovering/Resolving]
  - Diarrhoea [Unknown]
